FAERS Safety Report 6391713-3 (Version None)
Quarter: 2009Q4

REPORT INFORMATION
  Report Type: 
  Country: None (occurrence: None)
  Receive Date: 20091007
  Receipt Date: 20090529
  Transmission Date: 20100525
  Serious: No
  Sender: FDA-Public Use
  Company Number: US-BAYER-200921525NA

PATIENT
  Age: 57 Year
  Sex: Female

DRUGS (3)
  1. MIRENA [Suspect]
     Indication: VAGINAL HAEMORRHAGE
     Dosage: CONTINUOUS
     Route: 015
     Dates: start: 20090501, end: 20090520
  2. OTC SUPPLEMENTS [Concomitant]
  3. VIT C [Concomitant]

REACTIONS (1)
  - DEVICE EXPULSION [None]
